FAERS Safety Report 7056283-5 (Version None)
Quarter: 2010Q4

REPORT INFORMATION
  Report Type: 
  Country: None (occurrence: None)
  Receive Date: 20101021
  Receipt Date: 20100901
  Transmission Date: 20110411
  Serious: No
  Sender: FDA-Public Use
  Company Number: US-BAYER-201020942BCC

PATIENT
  Age: 25 Year
  Sex: Female
  Weight: 59 kg

DRUGS (2)
  1. ALEVE (CAPLET) [Suspect]
     Indication: DYSMENORRHOEA
     Dosage: AS USED: 440 MG  UNIT DOSE: 220 MG
     Route: 048
     Dates: start: 20100901
  2. MIDOL EXTENDED RELIEF CAPLETS [Suspect]
     Indication: DYSMENORRHOEA
     Route: 065

REACTIONS (2)
  - DYSMENORRHOEA [None]
  - DYSPEPSIA [None]
